FAERS Safety Report 26096832 (Version 1)
Quarter: 2025Q4

REPORT INFORMATION
  Report Type: Spontaneous
  Country: RU (occurrence: RU)
  Receive Date: 20251127
  Receipt Date: 20251127
  Transmission Date: 20260118
  Serious: Yes (Other)
  Sender: BRISTOL-MYERS SQUIBB COMPANY
  Company Number: RU-BRISTOL-MYERS SQUIBB COMPANY-2025-159492

PATIENT
  Age: 55 Year
  Sex: Female

DRUGS (2)
  1. ELIQUIS [Suspect]
     Active Substance: APIXABAN
     Indication: Portal vein thrombosis
     Dates: start: 202106, end: 202311
  2. ELIQUIS [Suspect]
     Active Substance: APIXABAN

REACTIONS (4)
  - Abnormal uterine bleeding [Unknown]
  - Mesenteric vein thrombosis [Unknown]
  - Superficial vein thrombosis [Unknown]
  - Off label use [Unknown]

NARRATIVE: CASE EVENT DATE: 20210101
